FAERS Safety Report 7900289-8 (Version None)
Quarter: 2011Q4

REPORT INFORMATION
  Report Type: 
  Country: None (occurrence: None)
  Receive Date: 20111104
  Receipt Date: 20111012
  Transmission Date: 20120403
  Serious: Yes (Other)
  Sender: FDA-Public Use
  Company Number: JP-ACCORD-010474

PATIENT
  Age: 70 Year
  Sex: Male

DRUGS (3)
  1. DOCETAXEL [Suspect]
     Indication: NON-SMALL CELL LUNG CANCER
     Dosage: 60.00-MG/M2-3.0WEEKS
  2. GRANISETRON [Concomitant]
  3. DEXAMETHASONE [Concomitant]

REACTIONS (7)
  - NEPHROPATHY TOXIC [None]
  - BLOOD CREATININE INCREASED [None]
  - FATIGUE [None]
  - FEBRILE NEUTROPENIA [None]
  - TOXICITY TO VARIOUS AGENTS [None]
  - HAEMATOTOXICITY [None]
  - BLOOD UREA INCREASED [None]
